FAERS Safety Report 15187328 (Version 2)
Quarter: 2019Q1

REPORT INFORMATION
  Report Type: Report from Study
  Country: US (occurrence: US)
  Receive Date: 20180723
  Receipt Date: 20190130
  Transmission Date: 20190417
  Serious: No
  Sender: FDA-Public Use
  Company Number: US-EXELIXIS-CABO-17011853

PATIENT
  Age: 81 Year
  Sex: Male

DRUGS (14)
  1. AMLODIPINE [Concomitant]
     Active Substance: AMLODIPINE BESYLATE
  2. VITAMIN B [Concomitant]
     Active Substance: VITAMIN B
  3. TURMERIC [Concomitant]
     Active Substance: HERBALS\TURMERIC
  4. FINASTERIDE. [Concomitant]
     Active Substance: FINASTERIDE
  5. MULTIVITAMIN [Concomitant]
     Active Substance: VITAMINS
  6. ASPIRIN. [Concomitant]
     Active Substance: ASPIRIN
  7. ATORVASTATIN [Concomitant]
     Active Substance: ATORVASTATIN
  8. FISH OIL [Concomitant]
     Active Substance: FISH OIL
  9. METOPROLOL. [Concomitant]
     Active Substance: METOPROLOL
  10. TYLENOL [Concomitant]
     Active Substance: ACETAMINOPHEN
  11. CABOMETYX [Suspect]
     Active Substance: CABOZANTINIB S-MALATE
     Indication: RENAL CANCER
     Dosage: 60 MG, QD
     Route: 048
     Dates: start: 201711, end: 20171120
  12. PROBIOTIC [Concomitant]
     Active Substance: PROBIOTICS NOS
  13. CLOBETASOL [Concomitant]
     Active Substance: CLOBETASOL
  14. LEVOTHYROXINE. [Concomitant]
     Active Substance: LEVOTHYROXINE

REACTIONS (1)
  - Post procedural complication [Unknown]

NARRATIVE: CASE EVENT DATE: 20171120
